FAERS Safety Report 24736823 (Version 1)
Quarter: 2024Q4

REPORT INFORMATION
  Report Type: Spontaneous
  Country: US (occurrence: US)
  Receive Date: 20241216
  Receipt Date: 20241216
  Transmission Date: 20250114
  Serious: No
  Sender: BRISTOL-MYERS SQUIBB COMPANY
  Company Number: US-BRISTOL-MYERS SQUIBB COMPANY-2024-194447

PATIENT
  Age: 78 Year
  Sex: Male

DRUGS (1)
  1. POMALYST [Suspect]
     Active Substance: POMALIDOMIDE
     Indication: White blood cell count decreased
     Dosage: DAILY FOR 21 DAYS
     Route: 048
     Dates: start: 202401

REACTIONS (2)
  - Rash [Recovering/Resolving]
  - Off label use [Unknown]
